FAERS Safety Report 24596120 (Version 1)
Quarter: 2024Q4

REPORT INFORMATION
  Report Type: Spontaneous
  Country: DE (occurrence: DE)
  Receive Date: 20241110
  Receipt Date: 20241110
  Transmission Date: 20250115
  Serious: Yes (Other)
  Sender: AUROBINDO
  Company Number: DE-009507513-2011DEU014585

PATIENT
  Age: 6 Year
  Sex: Female
  Weight: 21.4 kg

DRUGS (1)
  1. EZETIMIBE [Suspect]
     Active Substance: EZETIMIBE
     Indication: Low density lipoprotein
     Dosage: FREQUENCY: 2W
     Route: 065

REACTIONS (1)
  - Drug ineffective [Unknown]
